FAERS Safety Report 7530983-2 (Version None)
Quarter: 2011Q2

REPORT INFORMATION
  Report Type: 
  Country: None (occurrence: None)
  Receive Date: 20110608
  Receipt Date: 20090827
  Transmission Date: 20111010
  Serious: Yes (Death, Hospitalization, Other)
  Sender: FDA-Public Use
  Company Number: US-BAYER-200931301NA

PATIENT
  Age: 65 Year
  Sex: Male
  Weight: 104 kg

DRUGS (13)
  1. TECHNETIUM TC 99M GENERATOR [Concomitant]
     Dosage: 42.5 MCI FOR STRESS, UNK
     Dates: start: 20040102
  2. IMDUR [Concomitant]
     Dosage: 60 MG DAY
     Route: 048
     Dates: start: 20060630
  3. LASIX [Concomitant]
     Dosage: 40 MG TWICE DAY
     Route: 048
     Dates: start: 20060630
  4. PROTAMINE SULFATE [Concomitant]
     Dosage: UNK
     Route: 042
     Dates: start: 20060710, end: 20060710
  5. TECHNETIUM TC 99M GENERATOR [Concomitant]
     Indication: CARDIAC STRESS TEST
     Dosage: 13.0 MCI FOR REST, UNK
     Dates: start: 20040102
  6. HEPARIN [Concomitant]
     Dosage: 10,000 UNITS
     Route: 042
     Dates: start: 20060710, end: 20060710
  7. TRASYLOL [Suspect]
     Indication: MITRAL VALVE REPLACEMENT
     Dosage: 50 ML, Q1HR, INFUSION
     Route: 042
     Dates: start: 20060710, end: 20060710
  8. ACETYLSALICYLIC ACID SRT [Concomitant]
     Dosage: 81 MG DAY
     Route: 048
     Dates: start: 20060630
  9. THALLIUM (201 TL) [Concomitant]
     Indication: SCAN MYOCARDIAL PERFUSION
     Dosage: 2.2 MCI, UNK
     Dates: start: 19841018
  10. NITROGLYCERIN [Concomitant]
     Dosage: 0.4 MG AS NEEDED
     Route: 060
     Dates: end: 20060630
  11. ALDACTONE [Concomitant]
     Dosage: 12.5 MG DAY
     Route: 048
     Dates: start: 20060630
  12. COREG [Concomitant]
     Dosage: 12.5 MG TWICE A DAY
     Route: 048
     Dates: start: 20060630
  13. INSULIN [Concomitant]
     Dosage: 70 UNITS AM,75 UNITS PM
     Route: 058

REACTIONS (12)
  - EMOTIONAL DISTRESS [None]
  - ANXIETY [None]
  - INJURY [None]
  - RENAL IMPAIRMENT [None]
  - MULTI-ORGAN FAILURE [None]
  - RENAL INJURY [None]
  - PAIN [None]
  - RENAL FAILURE [None]
  - DEATH [None]
  - STRESS [None]
  - FEAR [None]
  - UNEVALUABLE EVENT [None]
